FAERS Safety Report 7321289-5 (Version None)
Quarter: 2011Q1

REPORT INFORMATION
  Report Type: 
  Country: None (occurrence: None)
  Receive Date: 20110228
  Receipt Date: 20100507
  Transmission Date: 20110831
  Serious: Yes (Hospitalization)
  Sender: FDA-Public Use
  Company Number: US-PFIZER INC-2010058447

PATIENT
  Age: 35 Year
  Sex: Female

DRUGS (2)
  1. RISPERIDONE [Concomitant]
     Dosage: UNK
  2. GEODON [Suspect]
     Dosage: 120 UNK, 2X/DAY

REACTIONS (1)
  - MANIA [None]
